FAERS Safety Report 5927872-3 (Version None)
Quarter: 2008Q4

REPORT INFORMATION
  Report Type: 
  Country: None (occurrence: None)
  Receive Date: 20081023
  Receipt Date: 20081022
  Transmission Date: 20090506
  Serious: Yes (Other)
  Sender: FDA-Public Use
  Company Number: VE-BRISTOL-MYERS SQUIBB COMPANY-14378491

PATIENT
  Age: 51 Year
  Sex: Female

DRUGS (4)
  1. REYATAZ [Suspect]
     Dates: start: 20080529
  2. ZIDOVUDINE [Suspect]
     Dates: start: 20010101
  3. LAMIVUDINE [Suspect]
     Dates: start: 20010101
  4. RITONAVIR [Suspect]
     Dates: start: 20080529

REACTIONS (1)
  - HYPERSENSITIVITY [None]
